FAERS Safety Report 6304045-6 (Version None)
Quarter: 2009Q3

REPORT INFORMATION
  Report Type: 
  Country: None (occurrence: None)
  Receive Date: 20090810
  Receipt Date: 20090731
  Transmission Date: 20100115
  Serious: Yes (Other)
  Sender: FDA-Public Use
  Company Number: ES-PFIZER INC-2009248533

PATIENT
  Age: 62 Year

DRUGS (4)
  1. CELEBREX [Suspect]
     Indication: ANALGESIA
     Dosage: 100 MG, UNK
     Route: 048
     Dates: start: 20070801
  2. AMARYL [Suspect]
     Indication: TYPE 2 DIABETES MELLITUS
     Dosage: 4 MG, 1X/DAY
     Route: 048
     Dates: start: 20080601
  3. CYMBALTA [Suspect]
     Indication: ANXIETY
     Dosage: 30 MG, 1X/DAY
     Route: 048
     Dates: start: 20080401
  4. PREVENCOR [Suspect]
     Dosage: 40 MG, 1X/DAY
     Route: 048
     Dates: start: 20071101

REACTIONS (1)
  - ERECTILE DYSFUNCTION [None]
